FAERS Safety Report 8519077 (Version 4)
Quarter: 2012Q4

REPORT INFORMATION
  Report Type: Spontaneous
  Country: US (occurrence: None)
  Receive Date: 20120410
  Receipt Date: 20120824
  Transmission Date: 20130627
  Serious: Yes (Other)
  Sender: FDA-Public Use
  Company Number: 1203-161

PATIENT
  Age: 80 Year
  Sex: Male

DRUGS (1)
  1. EYLEA [Suspect]
     Dosage: INTRAVITREAL
     Dates: start: 20120130

REACTIONS (4)
  - VISUAL ACUITY REDUCED [None]
  - MACULAR FIBROSIS [None]
  - RETINAL SCAR [None]
  - MACULAR OEDEMA [None]
